FAERS Safety Report 8124711-X (Version None)
Quarter: 2012Q1

REPORT INFORMATION
  Report Type: 
  Country: None (occurrence: None)
  Receive Date: 20120209
  Receipt Date: 20120202
  Transmission Date: 20120608
  Serious: Yes (Hospitalization)
  Sender: FDA-Public Use
  Company Number: US-JNJFOC-20120203601

PATIENT
  Sex: Female

DRUGS (1)
  1. RISPERDAL [Suspect]
     Indication: PRODUCT USED FOR UNKNOWN INDICATION
     Route: 065
     Dates: start: 20110401, end: 20110907

REACTIONS (5)
  - ABDOMINAL PAIN UPPER [None]
  - PYROMANIA [None]
  - PSYCHOTIC DISORDER [None]
  - INADEQUATE DIET [None]
  - ABNORMAL FAECES [None]
